FAERS Safety Report 22084295 (Version 1)
Quarter: 2023Q1

REPORT INFORMATION
  Report Type: Spontaneous
  Country: None (occurrence: US)
  Receive Date: 20230310
  Receipt Date: 20230310
  Transmission Date: 20230417
  Serious: No
  Sender: FDA-Public Use
  Company Number: US-Ascend Therapeutics US, LLC-2138917

PATIENT
  Sex: Female

DRUGS (2)
  1. BINOSTO [Suspect]
     Active Substance: ALENDRONATE SODIUM
     Indication: Polymyalgia rheumatica
     Route: 065
  2. BINOSTO [Suspect]
     Active Substance: ALENDRONATE SODIUM
     Route: 065

REACTIONS (2)
  - Product after taste [None]
  - Off label use [None]

NARRATIVE: CASE EVENT DATE: 20220101
